FAERS Safety Report 4580521-1 (Version None)
Quarter: 2005Q1

REPORT INFORMATION
  Report Type: 
  Country: None (occurrence: None)
  Receive Date: 20050214
  Receipt Date: 20040212
  Transmission Date: 20050727
  Serious: No
  Sender: FDA-Public Use
  Company Number: US-GLAXOSMITHKLINE-A0498006A

PATIENT
  Age: 46 Year
  Sex: Male

DRUGS (4)
  1. LAMICTAL [Suspect]
     Indication: DEPRESSION
     Dosage: 150MG TWICE PER DAY
     Route: 048
     Dates: start: 20031201
  2. STELAZINE [Concomitant]
  3. BENADRYL [Concomitant]
  4. CLONAZEPAM [Concomitant]

REACTIONS (1)
  - CRYING [None]
